FAERS Safety Report 4413032-4 (Version None)
Quarter: 2004Q3

REPORT INFORMATION
  Report Type: 
  Country: None (occurrence: None)
  Receive Date: 20040730
  Receipt Date: 20040730
  Transmission Date: 20050211
  Serious: Yes (Hospitalization)
  Sender: FDA-Public Use
  Company Number: None

PATIENT
  Age: 78 Year
  Sex: Male
  Weight: 94.8018 kg

DRUGS (21)
  1. LISINOPRIL 40 MG QD RENEWED 3/04-6/14 [Suspect]
     Indication: BLOOD PRESSURE INCREASED
     Dates: start: 20040301, end: 20040614
  2. HYDROCHLOROTHIAZIDE 50MG TAB [Suspect]
     Indication: BLOOD PRESSURE INCREASED
     Dates: start: 20040127, end: 20040614
  3. TERAZOSIN 10- MG QH4 [Suspect]
     Dates: start: 20040127, end: 20040614
  4. ACCU-CHEK COMFORT CV(GLUCOSE) TEST STRIP [Concomitant]
  5. AMOXICILLIN [Concomitant]
  6. ASPIRIN [Concomitant]
  7. CAPSAICIN [Concomitant]
  8. CYCLOBENZAPRINE HCL [Concomitant]
  9. FLUNISOLIDE [Concomitant]
  10. HYDROCHLOROTHIAZIDE [Concomitant]
  11. HYDROCODONE/ACETAMINOPHEN [Concomitant]
  12. LANCET [Concomitant]
  13. LISINOPRIL [Concomitant]
  14. METFORMIN HCL [Concomitant]
  15. NAPROXEN [Concomitant]
  16. OMEPRAZOLE [Concomitant]
  17. OXYBUTYNIN CHLORIDE [Concomitant]
  18. SIMVASTATIN [Concomitant]
  19. TERAZOSIN HCL [Concomitant]
  20. TIMOLOL MALEATE [Concomitant]
  21. TRAVOPROST [Concomitant]

REACTIONS (2)
  - DIZZINESS [None]
  - SYNCOPE [None]
